FAERS Safety Report 4886546-0 (Version None)
Quarter: 2005Q4

REPORT INFORMATION
  Report Type: 
  Country: None (occurrence: None)
  Receive Date: 20051220
  Receipt Date: 20050107
  Transmission Date: 20060501
  Serious: Yes (Other)
  Sender: FDA-Public Use
  Company Number: HQWYE472910JAN05

PATIENT
  Age: 72 Year
  Sex: Female
  Weight: 108.05 kg

DRUGS (18)
  1. EFFEXOR XR [Suspect]
     Indication: BEREAVEMENT
     Dosage: 37.5 MG 1X PER 1 TOT, ORAL
     Route: 048
     Dates: start: 20041201, end: 20041201
  2. HUMALOG [Concomitant]
  3. LANTUS [Concomitant]
  4. GLIPIZIDE [Concomitant]
  5. PACERONE [Concomitant]
  6. FUROSEMIDE [Concomitant]
  7. K-DUR 10 [Concomitant]
  8. HYZAAR [Concomitant]
  9. ZETIA [Concomitant]
  10. TOPROL-XL [Concomitant]
  11. LIPITOR [Concomitant]
  12. TRICOR [Concomitant]
  13. VITAMINS (VITAMINS) [Concomitant]
  14. ASPIRIN [Concomitant]
  15. AMBIEN [Concomitant]
  16. QUININE SULFATE [Concomitant]
  17. GLYCERYL TRINITRATE (GLYCERYL TRINITRATE) [Concomitant]
  18. IMDUR [Concomitant]

REACTIONS (3)
  - ANXIETY [None]
  - BLOOD PRESSURE INCREASED [None]
  - FEELING HOT [None]
